FAERS Safety Report 7474421-7 (Version None)
Quarter: 2011Q2

REPORT INFORMATION
  Report Type: 
  Country: None (occurrence: None)
  Receive Date: 20110512
  Receipt Date: 20110428
  Transmission Date: 20111010
  Serious: Yes (Life-Threatening, Hospitalization, Other)
  Sender: FDA-Public Use
  Company Number: US-BAYER-2011-036827

PATIENT
  Age: 66 Year
  Sex: Female

DRUGS (1)
  1. AVELOX [Suspect]
     Indication: SINUSITIS
     Dosage: UNK, BID
     Route: 048
     Dates: start: 20110101

REACTIONS (1)
  - THROMBOTIC THROMBOCYTOPENIC PURPURA [None]
